FAERS Safety Report 7528702-9 (Version None)
Quarter: 2011Q2

REPORT INFORMATION
  Report Type: 
  Country: None (occurrence: None)
  Receive Date: 20110607
  Receipt Date: 20110603
  Transmission Date: 20111010
  Serious: Yes (Hospitalization, Disabling, Other)
  Sender: FDA-Public Use
  Company Number: JP-PFIZER INC-2011114654

PATIENT
  Age: 57 Year
  Sex: Female
  Weight: 56 kg

DRUGS (5)
  1. LYRICA [Suspect]
     Indication: PAIN IN EXTREMITY
     Dosage: 75 MG, 2X/DAY
     Route: 048
     Dates: start: 20110217, end: 20110302
  2. NAIXAN [Concomitant]
     Indication: PAIN IN EXTREMITY
     Dosage: 300 MG, 2X/DAY
     Route: 048
     Dates: start: 20110217, end: 20110414
  3. LYRICA [Suspect]
     Dosage: 150 MG, 2X/DAY
     Route: 048
     Dates: start: 20110303, end: 20110316
  4. LYRICA [Suspect]
     Dosage: 225 MG, 2X/DAY
     Route: 048
     Dates: start: 20110317, end: 20110414
  5. LANSOPRAZOLE [Concomitant]
     Indication: PAIN IN EXTREMITY
     Dosage: 15 MG, 1X/DAY
     Route: 048
     Dates: start: 20110217, end: 20110414

REACTIONS (3)
  - SCLEREMA [None]
  - CATARACT [None]
  - PAIN IN EXTREMITY [None]
